FAERS Safety Report 9822083 (Version 2)
Quarter: 2014Q1

REPORT INFORMATION
  Report Type: Spontaneous
  Country: US (occurrence: US)
  Receive Date: 20140116
  Receipt Date: 20140121
  Transmission Date: 20141002
  Serious: Yes (Other)
  Sender: FDA-Public Use
  Company Number: PHEH2014US001063

PATIENT
  Age: 52 Year
  Sex: Male

DRUGS (5)
  1. EXFORGE HCT [Suspect]
     Dosage: 1 DF (320 MG VALS, 10 MG AMLO, 25 MG HYDR), QD
     Dates: start: 201110, end: 201309
  2. EXFORGE HCT [Suspect]
     Dosage: 1 DF (320/10/25 MG), QOD
     Dates: end: 201309
  3. BYSTOLIC [Concomitant]
     Dosage: 20 MG, QD
  4. INSULIN [Concomitant]
     Indication: DIABETES MELLITUS
     Dosage: UNK
     Dates: start: 201211
  5. ACTOS [Concomitant]
     Indication: DIABETES MELLITUS
     Dosage: UNK UKN, UNK
     Dates: start: 2011

REACTIONS (4)
  - Type 2 diabetes mellitus [Unknown]
  - Blood pressure increased [Unknown]
  - Migraine [Unknown]
  - Visual acuity reduced [Unknown]
